FAERS Safety Report 4692300-5 (Version None)
Quarter: 2005Q2

REPORT INFORMATION
  Report Type: 
  Country: None (occurrence: None)
  Receive Date: 20050614
  Receipt Date: 20050603
  Transmission Date: 20051028
  Serious: Yes (Hospitalization)
  Sender: FDA-Public Use
  Company Number: 2005053828

PATIENT
  Age: 83 Year
  Sex: Female

DRUGS (5)
  1. AMLODIPINE [Suspect]
     Indication: HYPERTENSION
     Dosage: 5 MG (5 MG, 1 IN 1 D) ORAL
     Route: 048
     Dates: start: 20050305, end: 20050322
  2. EFFEXOR [Concomitant]
  3. CAPRIN (ACETYLSALICYLIC ACID) [Concomitant]
  4. FOSAMAX [Concomitant]
  5. HALCION [Concomitant]

REACTIONS (1)
  - BLOOD CALCIUM INCREASED [None]
